FAERS Safety Report 4630680-7 (Version None)
Quarter: 2005Q2

REPORT INFORMATION
  Report Type: 
  Country: None (occurrence: None)
  Receive Date: 20050406
  Receipt Date: 20050322
  Transmission Date: 20051028
  Serious: Yes (Other)
  Sender: FDA-Public Use
  Company Number: USA050393837

PATIENT
  Age: 16 Year
  Sex: Male
  Weight: 106 kg

DRUGS (3)
  1. STRATTERA [Suspect]
     Indication: ATTENTION DEFICIT/HYPERACTIVITY DISORDER
     Dosage: 40 MG/2 DAY
     Dates: start: 20050216
  2. DUOFILM [Concomitant]
  3. TRIAMCINOLONE [Concomitant]

REACTIONS (3)
  - HEPATOTOXICITY [None]
  - PRURITUS GENERALISED [None]
  - SOMNOLENCE [None]
